FAERS Safety Report 14266104 (Version 1)
Quarter: 2017Q4

REPORT INFORMATION
  Report Type: Other
  Country: FR (occurrence: FR)
  Receive Date: 20171209
  Receipt Date: 20171209
  Transmission Date: 20180321
  Serious: Yes (Life-Threatening, Hospitalization)
  Sender: FDA-Public Use
  Company Number: FR-ALSI-201700422

PATIENT
  Age: 57 Year
  Sex: Female

DRUGS (1)
  1. OXYGEN 100% [Suspect]
     Active Substance: OXYGEN
     Indication: SUDDEN HEARING LOSS
     Route: 055

REACTIONS (5)
  - Air embolism [Recovering/Resolving]
  - Off label use [Unknown]
  - Barotrauma [Recovering/Resolving]
  - Pneumomediastinum [Recovering/Resolving]
  - Pneumoperitoneum [Recovering/Resolving]
